FAERS Safety Report 6289265-1 (Version None)
Quarter: 2009Q3

REPORT INFORMATION
  Report Type: 
  Country: None (occurrence: None)
  Receive Date: 20090730
  Receipt Date: 20070822
  Transmission Date: 20100115
  Serious: Yes (Other)
  Sender: FDA-Public Use
  Company Number: US-ASTRAZENECA-2006UW08014

PATIENT
  Age: 58 Year
  Sex: Female
  Weight: 77.8 kg

DRUGS (15)
  1. SEROQUEL [Suspect]
     Indication: DEPRESSION
     Dosage: 100 MG TO 600 MG
     Route: 048
     Dates: start: 20021127, end: 20060510
  2. SEROQUEL [Suspect]
     Route: 048
     Dates: start: 20030101, end: 20060501
  3. RISPERDAL [Concomitant]
     Dates: start: 19970406
  4. PROZAC [Concomitant]
     Dates: start: 20051123
  5. PROZAC [Concomitant]
     Dates: start: 20060510
  6. ABILIFY [Concomitant]
     Dates: start: 20070207
  7. GEODON [Concomitant]
     Dosage: 20 MG TO 40 MG
     Dates: start: 20020619
  8. PAXIL [Concomitant]
     Dosage: 20 MG TO 62.5 MG
     Dates: start: 19971118
  9. GLUCOPHAGE [Concomitant]
     Dosage: 500 MG TO 2000 MG
     Dates: start: 20030429
  10. AMBIEN [Concomitant]
     Indication: INSOMNIA
     Dates: start: 20011016
  11. PREMPRO [Concomitant]
     Indication: MENOPAUSE
     Dosage: 0.625 MG / 2.5 MG
     Dates: start: 20020619
  12. HYDROCHLOROTHIAZIDE [Concomitant]
     Indication: HYPERTENSION
     Route: 048
     Dates: start: 20011016
  13. EFFEXOR [Concomitant]
     Dates: start: 19970406
  14. LEXAPRO [Concomitant]
     Dates: start: 20051123
  15. DESYREL [Concomitant]
     Dates: start: 20021127

REACTIONS (4)
  - DIABETES MELLITUS [None]
  - DIABETIC FOOT [None]
  - DIABETIC NEUROPATHY [None]
  - TYPE 2 DIABETES MELLITUS [None]
